FAERS Safety Report 5471324-4 (Version None)
Quarter: 2007Q3

REPORT INFORMATION
  Report Type: 
  Country: None (occurrence: None)
  Receive Date: 20070928
  Receipt Date: 20060804
  Transmission Date: 20080115
  Serious: No
  Sender: FDA-Public Use
  Company Number: US-BRISTOL-MYERS SQUIBB COMPANY-13466347

PATIENT
  Sex: Female
  Weight: 93 kg

DRUGS (4)
  1. PERFLUTREN [Suspect]
     Indication: STRESS ECHOCARDIOGRAM
     Route: 040
     Dates: start: 20060804, end: 20060804
  2. ASPIRIN [Concomitant]
  3. AVAPRO [Concomitant]
  4. PANTOPRAZOLE SODIUM [Concomitant]

REACTIONS (1)
  - BACK PAIN [None]
